FAERS Safety Report 9582892 (Version 1)
Quarter: 2013Q4

REPORT INFORMATION
  Report Type: Spontaneous
  Country: US (occurrence: US)
  Receive Date: 20131002
  Receipt Date: 20131002
  Transmission Date: 20140711
  Serious: No
  Sender: FDA-Public Use
  Company Number: US-AMGEN-USASP2013043161

PATIENT
  Age: 44 Year
  Sex: Female
  Weight: 70.75 kg

DRUGS (5)
  1. ENBREL [Suspect]
     Indication: PRODUCT USED FOR UNKNOWN INDICATION
     Dosage: 50 MG, QWK
     Route: 058
     Dates: start: 2008, end: 201212
  2. BYSTOLIC [Concomitant]
     Dosage: 2.5 MG, UNK
  3. IBUPROFEN [Concomitant]
     Dosage: 200 MG, UNK
  4. BENICAR [Concomitant]
     Dosage: 5 MG, UNK
  5. NEXIUM                             /01479302/ [Concomitant]
     Dosage: 40 MG, UNK

REACTIONS (2)
  - C-reactive protein increased [Unknown]
  - Rheumatoid arthritis [Unknown]
